FAERS Safety Report 24383191 (Version 1)
Quarter: 2024Q3

REPORT INFORMATION
  Report Type: Spontaneous
  Country: US (occurrence: None)
  Receive Date: 20240930
  Receipt Date: 20240930
  Transmission Date: 20241017
  Serious: No
  Sender: Public
  Company Number: None

PATIENT
  Sex: Male

DRUGS (4)
  1. DEVICE [Suspect]
     Active Substance: DEVICE
  2. REMODULIN [Concomitant]
     Dosage: OTHER FREQUENCY : CONTINUOUS;?
     Route: 042
     Dates: start: 202402
  3. ADEMPAS [Concomitant]
  4. REMODULIN MDV [Concomitant]

REACTIONS (1)
  - Device failure [None]
